FAERS Safety Report 4776826-1 (Version None)
Quarter: 2005Q3

REPORT INFORMATION
  Report Type: 
  Country: None (occurrence: None)
  Receive Date: 20050923
  Receipt Date: 20050915
  Transmission Date: 20060218
  Serious: Yes (Hospitalization, Other)
  Sender: FDA-Public Use
  Company Number: 200518217GDDC

PATIENT
  Age: 52 Year
  Sex: Male

DRUGS (4)
  1. ARAVA [Suspect]
     Indication: RHEUMATOID ARTHRITIS
     Route: 048
     Dates: start: 20050101, end: 20050915
  2. SALAZOPYRIN [Concomitant]
     Indication: RHEUMATOID ARTHRITIS
     Route: 048
     Dates: end: 20050825
  3. OXIKLORIN [Concomitant]
     Indication: RHEUMATOID ARTHRITIS
     Route: 048
     Dates: end: 20050825
  4. PREDNISON [Concomitant]
     Indication: RHEUMATOID ARTHRITIS
     Dosage: DOSE: 5-30
     Route: 048

REACTIONS (11)
  - ACINETOBACTER INFECTION [None]
  - BRONCHOPLEURAL FISTULA [None]
  - C-REACTIVE PROTEIN INCREASED [None]
  - IMPAIRED HEALING [None]
  - INFECTION [None]
  - LEUKOCYTOSIS [None]
  - LUNG OPERATION [None]
  - MICROCYTIC ANAEMIA [None]
  - PNEUMOTHORAX [None]
  - PSEUDOMONAS INFECTION [None]
  - THROMBOCYTHAEMIA [None]
